FAERS Safety Report 4918087-6 (Version None)
Quarter: 2006Q1

REPORT INFORMATION
  Report Type: 
  Country: None (occurrence: None)
  Receive Date: 20060215
  Receipt Date: 20060202
  Transmission Date: 20060701
  Serious: Yes (Hospitalization)
  Sender: FDA-Public Use
  Company Number: PAR_0496_2006

PATIENT
  Age: 29 Year
  Sex: Female

DRUGS (1)
  1. CLOMIPHENE [Suspect]
     Indication: INFERTILITY FEMALE
     Dosage: DF

REACTIONS (11)
  - ABDOMINAL PAIN LOWER [None]
  - ADNEXA UTERI PAIN [None]
  - ECTOPIC PREGNANCY [None]
  - HAEMOGLOBIN DECREASED [None]
  - HYPOVOLAEMIC SHOCK [None]
  - LOSS OF CONSCIOUSNESS [None]
  - PERITONEAL HAEMORRHAGE [None]
  - POLYCYSTIC OVARIES [None]
  - SYNCOPE [None]
  - UTERINE LEIOMYOMA [None]
  - VAGINAL DISCHARGE [None]
